FAERS Safety Report 9286857 (Version 2)
Quarter: 2013Q2

REPORT INFORMATION
  Report Type: Spontaneous
  Country: US (occurrence: US)
  Receive Date: 20130513
  Receipt Date: 20130626
  Transmission Date: 20140414
  Serious: No
  Sender: FDA-Public Use
  Company Number: US-PFIZER INC-2013146842

PATIENT
  Age: 69 Year
  Sex: Female
  Weight: 54.42 kg

DRUGS (3)
  1. TESSALON [Suspect]
     Indication: COUGH
     Dosage: UNK
  2. TESSALON [Suspect]
     Indication: MUSCLE SPASMS
     Dosage: UNK, THREE TIMES A DAY
     Dates: start: 20130509, end: 20130510
  3. TESSALON [Suspect]
     Dosage: 100 MG, 3 DOSES TOTAL ONCE 4 DAYS
     Route: 048
     Dates: start: 20130510, end: 20130514

REACTIONS (6)
  - Expired drug administered [Unknown]
  - Hypoaesthesia oral [Recovered/Resolved]
  - Pharyngeal hypoaesthesia [Recovered/Resolved]
  - Sensory loss [Recovered/Resolved]
  - Dysphagia [Recovered/Resolved]
  - Product taste abnormal [Unknown]
